FAERS Safety Report 25210011 (Version 5)
Quarter: 2025Q3

REPORT INFORMATION
  Report Type: Spontaneous
  Country: US (occurrence: US)
  Receive Date: 20250417
  Receipt Date: 20250716
  Transmission Date: 20251021
  Serious: No
  Sender: NOVARTIS
  Company Number: US-002147023-NVSC2025US059699

PATIENT
  Age: 70 Year
  Sex: Female

DRUGS (1)
  1. LEQVIO [Suspect]
     Active Substance: INCLISIRAN SODIUM
     Indication: Product used for unknown indication
     Route: 065
     Dates: start: 20250407

REACTIONS (11)
  - Pain [Recovering/Resolving]
  - Peripheral swelling [Unknown]
  - Breast pain [Recovering/Resolving]
  - Neck pain [Recovering/Resolving]
  - Movement disorder [Unknown]
  - Feeling abnormal [Unknown]
  - Arthralgia [Unknown]
  - Pain in extremity [Recovering/Resolving]
  - Raynaud^s phenomenon [Unknown]
  - Paraesthesia [Unknown]
  - Pain [Recovering/Resolving]

NARRATIVE: CASE EVENT DATE: 20250407
